FAERS Safety Report 8138071-1 (Version None)
Quarter: 2012Q1

REPORT INFORMATION
  Report Type: 
  Country: None (occurrence: None)
  Receive Date: 20120215
  Receipt Date: 20120131
  Transmission Date: 20120608
  Serious: Yes (Hospitalization)
  Sender: FDA-Public Use
  Company Number: DE-MILLENNIUM PHARMACEUTICALS, INC.-2011-03283

PATIENT

DRUGS (5)
  1. CYCLOPHOSPHAMIDE [Concomitant]
     Indication: MULTIPLE MYELOMA
  2. DEXAMETHASONE [Concomitant]
     Indication: MULTIPLE MYELOMA
     Dosage: 20 MG, UNK
     Dates: start: 20110405, end: 20110617
  3. DOXORUBICIN HCL [Concomitant]
     Indication: MULTIPLE MYELOMA
     Dosage: 9 MG/M2, UNK
     Dates: start: 20110405, end: 20110617
  4. PAMIDRONATE DISODIUM [Concomitant]
     Indication: MULTIPLE MYELOMA
     Dosage: UNK
     Dates: start: 20110412
  5. VELCADE [Suspect]
     Indication: MULTIPLE MYELOMA
     Dosage: 2.07 MG, UNK
     Dates: start: 20110405, end: 20110617

REACTIONS (3)
  - PLEURITIC PAIN [None]
  - PULMONARY EMBOLISM [None]
  - COXSACKIE VIRAL INFECTION [None]
